FAERS Safety Report 10457561 (Version 2)
Quarter: 2014Q4

REPORT INFORMATION
  Report Type: Spontaneous
  Country: MX (occurrence: MX)
  Receive Date: 20140916
  Receipt Date: 20141009
  Transmission Date: 20150528
  Serious: Yes (Other)
  Sender: FDA-Public Use
  Company Number: PHHY2014MX119829

PATIENT
  Age: 82 Year
  Sex: Female

DRUGS (4)
  1. DIOVAN [Suspect]
     Active Substance: VALSARTAN
     Indication: HYPERTENSION
     Dosage: 1 DF (320 MG), DAILY
     Route: 048
     Dates: start: 201407, end: 20140910
  2. METFORMIN [Concomitant]
     Active Substance: METFORMIN HYDROCHLORIDE
     Indication: DIABETES MELLITUS
     Dosage: 2 DF, DAILY
  3. LEVOTHYROXINE [Concomitant]
     Active Substance: LEVOTHYROXINE
     Indication: THYROID DISORDER
     Dosage: 1 DF, DAILY
  4. TRAVATAN [Concomitant]
     Active Substance: TRAVOPROST
     Indication: EYE DISORDER
     Dosage: 2 DRP (1 PER EYE)
     Dates: start: 2013

REACTIONS (6)
  - Emotional disorder [Unknown]
  - Blood pressure increased [Not Recovered/Not Resolved]
  - Speech disorder [Unknown]
  - General physical health deterioration [Unknown]
  - Diabetes mellitus [Unknown]
  - Swelling [Unknown]

NARRATIVE: CASE EVENT DATE: 20140910
